FAERS Safety Report 17848705 (Version 3)
Quarter: 2020Q2

REPORT INFORMATION
  Report Type: Spontaneous
  Country: NL (occurrence: NL)
  Receive Date: 20200602
  Receipt Date: 20200616
  Transmission Date: 20200714
  Serious: Yes (Other)
  Sender: FDA-Public Use
  Company Number: NVSC2020NL148526

PATIENT
  Age: 68 Year
  Sex: Male
  Weight: 88.9 kg

DRUGS (19)
  1. CYCLOPHOSPHAMIDE. [Suspect]
     Active Substance: CYCLOPHOSPHAMIDE
     Dosage: 1060 MG, QD
     Route: 042
     Dates: start: 20200229
  2. MESNA. [Suspect]
     Active Substance: MESNA
     Indication: PROPHYLAXIS
     Dosage: 400 MG, TID
     Route: 042
     Dates: start: 20200227, end: 20200301
  3. MESNA. [Suspect]
     Active Substance: MESNA
     Dosage: 400 MG, TID
     Route: 042
     Dates: start: 20200301
  4. FLUDARABINE PHOSPHATE. [Suspect]
     Active Substance: FLUDARABINE PHOSPHATE
     Indication: BONE MARROW CONDITIONING REGIMEN
     Dosage: 32.5 MG, QD
     Route: 042
     Dates: start: 20200227, end: 20200229
  5. DEXAMETHASONE. [Suspect]
     Active Substance: DEXAMETHASONE
     Dosage: 10 MG, QID
     Route: 048
     Dates: start: 20200214, end: 20200217
  6. PCM [Suspect]
     Active Substance: ACETAMINOPHEN
     Indication: PYREXIA
     Dosage: 1000 MG, PRN
     Route: 048
     Dates: start: 20200303, end: 20200310
  7. MAGNESIUMHYDROXIDE [Concomitant]
     Indication: ABDOMINAL PAIN UPPER
     Dosage: 724 MG, BID
     Route: 048
     Dates: start: 20100510
  8. FLUDARABINE PHOSPHATE. [Suspect]
     Active Substance: FLUDARABINE PHOSPHATE
     Dosage: 32.5 MG, QD
     Route: 042
     Dates: start: 20200229
  9. DEXAMETHASONE. [Suspect]
     Active Substance: DEXAMETHASONE
     Indication: CHEMOTHERAPY
     Dosage: 10 MG, QID
     Route: 048
     Dates: start: 20200114, end: 20200117
  10. OMEPRAZOLE. [Concomitant]
     Active Substance: OMEPRAZOLE
     Indication: PRODUCT USED FOR UNKNOWN INDICATION
     Dosage: 40 MG, QD
     Route: 048
     Dates: start: 20200228
  11. POTASSIUM CHLORIDE AND SODIUM CHLORIDE [Concomitant]
     Active Substance: POTASSIUM CHLORIDE\SODIUM CHLORIDE
     Indication: PRODUCT USED FOR UNKNOWN INDICATION
     Dosage: 30 MMOL, ONCE/SINGLE
     Route: 065
     Dates: start: 20200309, end: 20200309
  12. CYCLOPHOSPHAMIDE. [Suspect]
     Active Substance: CYCLOPHOSPHAMIDE
     Indication: BONE MARROW CONDITIONING REGIMEN
     Dosage: 1060 MG, QD
     Route: 042
     Dates: start: 20200227, end: 20200229
  13. DEXAMETHASONE. [Suspect]
     Active Substance: DEXAMETHASONE
     Dosage: 10 MG, QD
     Route: 042
     Dates: start: 20200308, end: 20200308
  14. TOCILIZUMAB. [Suspect]
     Active Substance: TOCILIZUMAB
     Indication: CYTOKINE RELEASE SYNDROME
     Dosage: 699.2 MG, QD
     Route: 042
     Dates: start: 20200306, end: 20200308
  15. FLUDARABINE [Suspect]
     Active Substance: FLUDARABINE PHOSPHATE
     Indication: BONE MARROW CONDITIONING REGIMEN
     Dosage: 32.5 MG, QD
     Route: 042
     Dates: start: 20200227
  16. HYDROCHLOROTHIAZIDE. [Concomitant]
     Active Substance: HYDROCHLOROTHIAZIDE
     Indication: DIURETIC THERAPY
     Dosage: 12.5 MG, PRN
     Route: 048
     Dates: start: 20200227
  17. LISINOPRIL. [Concomitant]
     Active Substance: LISINOPRIL
     Indication: HYPERTENSION
     Dosage: 20 MG, TOTAL
     Route: 048
     Dates: start: 20200227, end: 20200227
  18. DEXAMETHASONE. [Suspect]
     Active Substance: DEXAMETHASONE
     Dosage: 10 MG, QD
     Route: 042
     Dates: start: 20200311
  19. PCM [Suspect]
     Active Substance: ACETAMINOPHEN
     Dosage: UNK
     Route: 048
     Dates: start: 20200310

REACTIONS (9)
  - Neutrophil count decreased [Not Recovered/Not Resolved]
  - Abdominal pain upper [Not Recovered/Not Resolved]
  - Cytokine release syndrome [Recovered/Resolved]
  - Neurotoxicity [Recovered/Resolved]
  - Hypertension [Recovered/Resolved]
  - Dysgeusia [Recovered/Resolved]
  - Atrial fibrillation [Recovered/Resolved with Sequelae]
  - Hepatic enzyme increased [Recovered/Resolved]
  - Hyperhidrosis [Not Recovered/Not Resolved]

NARRATIVE: CASE EVENT DATE: 20200303
